FAERS Safety Report 14112794 (Version 2)
Quarter: 2017Q4

REPORT INFORMATION
  Report Type: Spontaneous
  Country: IT (occurrence: IT)
  Receive Date: 20171021
  Receipt Date: 20171101
  Transmission Date: 20180321
  Serious: Yes (Other)
  Sender: FDA-Public Use
  Company Number: IT-NAPPMUNDI-GBR-2017-0049972

PATIENT

DRUGS (3)
  1. TARGIN [Suspect]
     Active Substance: NALOXONE HYDROCHLORIDE\OXYCODONE HYDROCHLORIDE
     Indication: FIBROMYALGIA
     Dosage: 1 UNIT, DAILY (5MG/2.5MG STRENGHT)
     Route: 048
     Dates: start: 20170424, end: 20170424
  2. RIVOTRIL [Suspect]
     Active Substance: CLONAZEPAM
     Indication: FIBROMYALGIA
     Dosage: 6 DROP, DAILY (2.5MG/ML STRENGHT)
     Route: 048
     Dates: start: 20170424, end: 20170424
  3. PREGABALIN. [Suspect]
     Active Substance: PREGABALIN
     Indication: FIBROMYALGIA
     Dosage: UNK
     Route: 065
     Dates: start: 20170424, end: 20170424

REACTIONS (2)
  - Vertigo [Recovering/Resolving]
  - Hallucination [Recovering/Resolving]

NARRATIVE: CASE EVENT DATE: 20170424
